FAERS Safety Report 16920007 (Version 1)
Quarter: 2019Q4

REPORT INFORMATION
  Report Type: Spontaneous
  Country: US (occurrence: US)
  Receive Date: 20191015
  Receipt Date: 20191015
  Transmission Date: 20200122
  Serious: Yes (Other)
  Sender: FDA-Public Use
  Company Number: None

PATIENT
  Age: 48 Year
  Sex: Female
  Weight: 96.8 kg

DRUGS (2)
  1. METRONIDAZOLE. [Concomitant]
     Active Substance: METRONIDAZOLE
     Dates: start: 20180807, end: 20180816
  2. CIPROFLOXACIN. [Suspect]
     Active Substance: CIPROFLOXACIN
     Indication: DIVERTICULITIS
     Route: 048
     Dates: start: 20180807, end: 20180816

REACTIONS (8)
  - Fatigue [None]
  - Malaise [None]
  - Balance disorder [None]
  - Fall [None]
  - Restless legs syndrome [None]
  - Hypersomnia [None]
  - Paraesthesia [None]
  - Cognitive disorder [None]

NARRATIVE: CASE EVENT DATE: 20180807
